FAERS Safety Report 4630430-4 (Version None)
Quarter: 2005Q2

REPORT INFORMATION
  Report Type: 
  Country: None (occurrence: None)
  Receive Date: 20050406
  Receipt Date: 20050401
  Transmission Date: 20051028
  Serious: Yes (Other)
  Sender: FDA-Public Use
  Company Number: 004525

PATIENT
  Sex: Female

DRUGS (4)
  1. MEDROXYPROGESTERONE ACETATE [Suspect]
     Dates: start: 19920101, end: 19960101
  2. PREMARIN [Suspect]
     Dates: start: 19920101, end: 19960101
  3. PROVERA [Suspect]
     Dates: start: 19920101, end: 19960101
  4. MEDROXYPROGESTERONE ACETATE [Suspect]
     Dates: start: 19960101, end: 20020101

REACTIONS (1)
  - BREAST CANCER FEMALE [None]
